FAERS Safety Report 4524482-X (Version None)
Quarter: 2004Q4

REPORT INFORMATION
  Report Type: 
  Country: None (occurrence: None)
  Receive Date: 20041117
  Receipt Date: 20031015
  Transmission Date: 20050328
  Serious: Yes (Hospitalization)
  Sender: FDA-Public Use
  Company Number: US-JNJFOC-20031003851

PATIENT

DRUGS (1)
  1. LEVAQUIN [Suspect]
     Indication: CELLULITIS

REACTIONS (1)
  - DRUG INEFFECTIVE [None]
